FAERS Safety Report 5287722-8 (Version None)
Quarter: 2007Q1

REPORT INFORMATION
  Report Type: 
  Country: None (occurrence: None)
  Receive Date: 20070116
  Receipt Date: 20060918
  Transmission Date: 20070707
  Serious: No
  Sender: FDA-Public Use
  Company Number: 2006SP003324

PATIENT
  Sex: Female
  Weight: 85.7298 kg

DRUGS (5)
  1. LUNESTA [Suspect]
     Indication: INSOMNIA
     Dosage: 3 MG; ORAL
     Route: 048
     Dates: start: 20060907, end: 20070112
  2. DIPHENHYDRAMINE HCL [Concomitant]
  3. HYDROCHLORIDE [Concomitant]
  4. ALBUTEROL [Concomitant]
  5. CLARITIN-D [Concomitant]

REACTIONS (2)
  - DYSGEUSIA [None]
  - INSOMNIA [None]
